FAERS Safety Report 24860087 (Version 1)
Quarter: 2025Q1

REPORT INFORMATION
  Report Type: Report from Study
  Country: FR (occurrence: FR)
  Receive Date: 20250120
  Receipt Date: 20250120
  Transmission Date: 20250408
  Serious: Yes (Hospitalization)
  Sender: BIOGEN
  Company Number: FR-BIOGEN-2025BI01297338

PATIENT
  Sex: Male
  Weight: 85 kg

DRUGS (1)
  1. OMAVELOXOLONE [Suspect]
     Active Substance: OMAVELOXOLONE
     Indication: Friedreich^s ataxia
     Dosage: PLANNED POSOLOGY: 150MG ONCE PER DAY (3 CAPSULES OF 50MG) PLANNED DURATION: SINGLE ADMINISTRATION
     Route: 050

REACTIONS (1)
  - Phlebitis [Unknown]
